FAERS Safety Report 10995283 (Version 1)
Quarter: 2015Q2

REPORT INFORMATION
  Report Type: Spontaneous
  Country: US (occurrence: US)
  Receive Date: 20150407
  Receipt Date: 20150407
  Transmission Date: 20150821
  Serious: Yes (Death, Other)
  Sender: FDA-Public Use
  Company Number: US-ASTRAZENECA-2015SE31663

PATIENT
  Age: 27050 Day
  Sex: Female

DRUGS (13)
  1. AMOXICILLIN. [Concomitant]
     Active Substance: AMOXICILLIN
     Dates: start: 20020102
  2. LIPITOR [Concomitant]
     Active Substance: ATORVASTATIN CALCIUM
     Dates: start: 20020312
  3. PLAVIX [Concomitant]
     Active Substance: CLOPIDOGREL BISULFATE
     Dates: start: 20020320
  4. JANUVIA [Concomitant]
     Active Substance: SITAGLIPTIN PHOSPHATE
     Dates: start: 20090421
  5. ATENOLOL. [Concomitant]
     Active Substance: ATENOLOL
     Indication: HYPERTENSION
     Dates: start: 20020320
  6. GLIPIZIDE ER [Concomitant]
     Active Substance: GLIPIZIDE
     Dates: start: 20050221
  7. ALPRAZOLAM. [Concomitant]
     Active Substance: ALPRAZOLAM
     Dates: start: 20020110
  8. NEXIUM [Concomitant]
     Active Substance: ESOMEPRAZOLE MAGNESIUM
     Dates: start: 20090421
  9. BISACODYL. [Concomitant]
     Active Substance: BISACODYL
  10. TRAMADOL [Concomitant]
     Active Substance: TRAMADOL
     Indication: PAIN
  11. BYETTA [Suspect]
     Active Substance: EXENATIDE
     Dosage: 10 MCG
     Route: 065
     Dates: start: 20070501
  12. ACTOS [Concomitant]
     Active Substance: PIOGLITAZONE HYDROCHLORIDE
     Dates: start: 20050221
  13. AMLODIPINE [Concomitant]
     Active Substance: AMLODIPINE BESYLATE
     Indication: HYPERTENSION

REACTIONS (5)
  - Pancreatic duct dilatation [Unknown]
  - Cholestasis [Unknown]
  - Jaundice cholestatic [Unknown]
  - Adenocarcinoma pancreas [Fatal]
  - Pancreatic atrophy [Unknown]

NARRATIVE: CASE EVENT DATE: 20120620
